FAERS Safety Report 16927645 (Version 1)
Quarter: 2019Q4

REPORT INFORMATION
  Report Type: Spontaneous
  Country: BR (occurrence: BR)
  Receive Date: 20191016
  Receipt Date: 20191016
  Transmission Date: 20200122
  Serious: Yes (Other)
  Sender: FDA-Public Use
  Company Number: PHHY2019BR203342

PATIENT
  Age: 71 Year
  Sex: Female

DRUGS (1)
  1. TRAVATAN Z [Suspect]
     Active Substance: TRAVOPROST
     Indication: POSTOPERATIVE CARE
     Dosage: 2.5 ML
     Route: 065

REACTIONS (3)
  - Intraocular pressure increased [Unknown]
  - Cataract [Unknown]
  - Product container seal issue [Unknown]
